FAERS Safety Report 4830836-4 (Version None)
Quarter: 2005Q4

REPORT INFORMATION
  Report Type: 
  Country: None (occurrence: None)
  Receive Date: 20051117
  Receipt Date: 20051107
  Transmission Date: 20060501
  Serious: Yes (Death, Hospitalization)
  Sender: FDA-Public Use
  Company Number: US-MERCK-0511USA00920

PATIENT
  Age: 83 Year
  Sex: Female

DRUGS (4)
  1. VIOXX [Suspect]
     Route: 048
     Dates: start: 20031118, end: 20031214
  2. VIOXX [Suspect]
     Route: 048
     Dates: start: 20020101, end: 20030101
  3. [THERAPY UNSPECIFIED] [Concomitant]
     Indication: DIABETES MELLITUS
     Route: 048
  4. [THERAPY UNSPECIFIED] [Concomitant]
     Route: 048

REACTIONS (9)
  - ATRIOVENTRICULAR BLOCK COMPLETE [None]
  - BACK PAIN [None]
  - CEREBROVASCULAR ACCIDENT [None]
  - DYSPNOEA [None]
  - FALL [None]
  - FLUID RETENTION [None]
  - MUSCULOSKELETAL DISCOMFORT [None]
  - RENAL PAIN [None]
  - WEIGHT INCREASED [None]
